FAERS Safety Report 6317955-0 (Version None)
Quarter: 2009Q3

REPORT INFORMATION
  Report Type: 
  Country: None (occurrence: None)
  Receive Date: 20090821
  Receipt Date: 20090812
  Transmission Date: 20100115
  Serious: Yes (Hospitalization, Other)
  Sender: FDA-Public Use
  Company Number: DE-CELGENEUS-062-50794-09060741

PATIENT
  Sex: Female
  Weight: 59 kg

DRUGS (2)
  1. VIDAZA [Suspect]
     Route: 058
     Dates: start: 20090421, end: 20090422
  2. VIDAZA [Suspect]

REACTIONS (15)
  - ANAEMIA VITAMIN B12 DEFICIENCY [None]
  - BLOOD CALCIUM DECREASED [None]
  - BLOOD POTASSIUM DECREASED [None]
  - BLOOD UREA INCREASED [None]
  - DYSPHAGIA [None]
  - HAEMORRHOIDS [None]
  - HEPATIC STEATOSIS [None]
  - PHARYNGEAL DISORDER [None]
  - PNEUMONIA [None]
  - PYREXIA [None]
  - SINUS TACHYCARDIA [None]
  - SINUSITIS [None]
  - THROMBOCYTOPENIA [None]
  - VENOUS THROMBOSIS [None]
  - VOMITING [None]
